FAERS Safety Report 10019698 (Version 1)
Quarter: 2014Q1

REPORT INFORMATION
  Report Type: Report from Study
  Country: CA (occurrence: CA)
  Receive Date: 20140318
  Receipt Date: 20140318
  Transmission Date: 20141002
  Serious: Yes (Other)
  Sender: FDA-Public Use
  Company Number: CA-UCBSA-114584

PATIENT
  Age: 65 Year
  Sex: Female
  Weight: 70.3 kg

DRUGS (12)
  1. CIMZIA [Suspect]
     Indication: RHEUMATOID ARTHRITIS
     Route: 058
     Dates: start: 20130816
  2. CIMZIA [Suspect]
     Indication: RHEUMATOID ARTHRITIS
     Dosage: NO OF DOSE INTAKES: 3
     Route: 058
     Dates: start: 20130705, end: 20130802
  3. METOPROLOL [Concomitant]
     Indication: HYPERTENSION
     Route: 048
     Dates: start: 201401
  4. COUMADIN [Concomitant]
     Indication: CARDIOVASCULAR EVENT PROPHYLAXIS
     Dosage: VARIABLE INTAKE
     Route: 048
     Dates: start: 201401
  5. TYLENOL ARTHRITIS [Concomitant]
     Indication: ARTHRALGIA
     Route: 048
  6. PREDNISONE [Concomitant]
     Indication: ARTHRALGIA
     Route: 048
     Dates: start: 201401
  7. OSCAL [Concomitant]
     Indication: MINERAL SUPPLEMENTATION
     Route: 048
     Dates: start: 201401
  8. VITAMIN D [Concomitant]
     Indication: VITAMIN SUPPLEMENTATION
     Dosage: 1000 UI
     Route: 048
  9. PANTOLOC [Concomitant]
     Indication: PROPHYLAXIS AGAINST GASTROINTESTINAL ULCER
     Route: 048
  10. ATORVASTATIN [Concomitant]
     Indication: HYPERCHOLESTEROLAEMIA
     Route: 048
     Dates: start: 2011
  11. FERROUS SULFATE [Concomitant]
     Indication: ANAEMIA
     Route: 048
     Dates: start: 201401
  12. ACTONEL [Concomitant]
     Indication: OSTEOPOROSIS
     Route: 048

REACTIONS (3)
  - Atrial fibrillation [Recovered/Resolved]
  - Atrial thrombosis [Recovering/Resolving]
  - Urticaria [Recovered/Resolved]
